FAERS Safety Report 5960282-1 (Version None)
Quarter: 2008Q4

REPORT INFORMATION
  Report Type: 
  Country: None (occurrence: None)
  Receive Date: 20081120
  Receipt Date: 20081117
  Transmission Date: 20090506
  Serious: Yes (Death)
  Sender: FDA-Public Use
  Company Number: DE-AVENTIS-200812830DE

PATIENT
  Age: 71 Year
  Sex: Female
  Weight: 68 kg

DRUGS (4)
  1. CLEXANE MULTI INJEKTIONSLOESUNG [Suspect]
     Indication: UTEROVAGINAL PROLAPSE
     Route: 058
     Dates: start: 20080923, end: 20080924
  2. SODIUM CHLORIDE [Concomitant]
     Indication: SURGERY
     Route: 042
     Dates: start: 20080923, end: 20080923
  3. ELECTROLYTE SOLUTIONS [Concomitant]
     Indication: SURGERY
     Route: 042
     Dates: start: 20080923, end: 20080924
  4. RINGER-LAKTAT                      /01126301/ [Concomitant]
     Indication: SURGERY
     Route: 042
     Dates: start: 20080923, end: 20080924

REACTIONS (3)
  - CARDIAC ARREST [None]
  - PRODUCT QUALITY ISSUE [None]
  - PULMONARY EMBOLISM [None]
